FAERS Safety Report 6451906 (Version 2)
Quarter: 2013Q1

REPORT INFORMATION
  Report Type: Spontaneous
  Country: DE (occurrence: DE)
  Receive Date: 20071026
  Receipt Date: 20130311
  Transmission Date: 20140127
  Serious: Yes (Hospitalization, Other)
  Sender: FDA-Public Use
  Company Number: DE-JNJFOC-20071003794

PATIENT
  Age: 51 Year
  Sex: Male
  Weight: 86 kg

DRUGS (6)
  1. REMICADE [Suspect]
     Indication: PSORIASIS
     Route: 042
     Dates: start: 2005, end: 2007
  2. REMICADE [Suspect]
     Indication: PSORIATIC ARTHROPATHY
     Route: 042
     Dates: start: 2005, end: 2007
  3. ARCOXIA [Concomitant]
     Indication: PSORIATIC ARTHROPATHY
  4. MYDOCALM [Concomitant]
     Indication: PSORIATIC ARTHROPATHY
  5. LYRICA [Concomitant]
     Indication: PSORIATIC ARTHROPATHY
     Dosage: 75-150 MG TWICE DAILY
  6. FENTANYL [Concomitant]
     Indication: PSORIATIC ARTHROPATHY
     Route: 062

REACTIONS (4)
  - Psoriasis [Unknown]
  - Tuberculosis [Unknown]
  - Pain [Unknown]
  - Arthralgia [Unknown]
